FAERS Safety Report 17400779 (Version 3)
Quarter: 2025Q2

REPORT INFORMATION
  Report Type: Spontaneous
  Country: CL (occurrence: ES)
  Receive Date: 20200211
  Receipt Date: 20250621
  Transmission Date: 20250716
  Serious: Yes (Other)
  Sender: AUROBINDO
  Company Number: ES-002147023-NVSC2019ES076124

PATIENT
  Sex: Male

DRUGS (10)
  1. TENOFOVIR DISOPROXIL [Suspect]
     Active Substance: TENOFOVIR DISOPROXIL
     Indication: Antiretroviral therapy
     Route: 065
     Dates: start: 2002, end: 2010
  2. TENOFOVIR DISOPROXIL [Suspect]
     Active Substance: TENOFOVIR DISOPROXIL
     Indication: HIV infection
  3. DIDANOSINE [Suspect]
     Active Substance: DIDANOSINE
     Indication: Antiretroviral therapy
     Route: 065
     Dates: start: 2001, end: 2003
  4. STAVUDINE [Suspect]
     Active Substance: STAVUDINE
     Indication: Antiretroviral therapy
     Route: 065
     Dates: end: 2002
  5. LOPINAVIR\RITONAVIR [Suspect]
     Active Substance: LOPINAVIR\RITONAVIR
     Indication: Antiretroviral therapy
     Dosage: 300/75 MG, TWO TIMES A DAY
     Route: 065
     Dates: start: 2002, end: 2015
  6. LOPINAVIR\RITONAVIR [Suspect]
     Active Substance: LOPINAVIR\RITONAVIR
     Indication: HIV infection
     Dosage: 300/75 MG, TWO TIMES A DAY
     Route: 065
     Dates: start: 2010
  7. LOPINAVIR\RITONAVIR [Suspect]
     Active Substance: LOPINAVIR\RITONAVIR
     Dosage: 200/50 MG, TWO TIMES A DAY
     Route: 065
     Dates: start: 2013
  8. LOPINAVIR\RITONAVIR [Suspect]
     Active Substance: LOPINAVIR\RITONAVIR
     Dosage: 300/75 MG, TWO TIMES A DAY
     Route: 065
     Dates: start: 2013
  9. ABACAVIR [Suspect]
     Active Substance: ABACAVIR
     Indication: Antiretroviral therapy
     Route: 065
     Dates: start: 2008, end: 2010
  10. ABACAVIR [Suspect]
     Active Substance: ABACAVIR
     Indication: HIV infection

REACTIONS (9)
  - Hypophosphataemia [Unknown]
  - Musculoskeletal toxicity [Recovered/Resolved]
  - Fanconi syndrome [Unknown]
  - Asthenia [Recovered/Resolved]
  - Nephropathy toxic [Recovering/Resolving]
  - Glycosuria [Unknown]
  - Fatigue [Recovered/Resolved]
  - Myalgia [Recovered/Resolved]
  - Proteinuria [Unknown]

NARRATIVE: CASE EVENT DATE: 20100101
